FAERS Safety Report 6189946-4 (Version None)
Quarter: 2009Q2

REPORT INFORMATION
  Report Type: 
  Country: None (occurrence: None)
  Receive Date: 20090514
  Receipt Date: 20090503
  Transmission Date: 20091009
  Serious: Yes (Other)
  Sender: FDA-Public Use
  Company Number: PHEH2009US04728

PATIENT
  Sex: Female
  Weight: 62.585 kg

DRUGS (2)
  1. EXELON [Suspect]
     Dosage: 4.6 MG DAILY
     Route: 062
     Dates: start: 20090127, end: 20090202
  2. FENTANYL [Concomitant]
     Route: 062

REACTIONS (3)
  - BLOOD GLUCOSE DECREASED [None]
  - INCORRECT DOSE ADMINISTERED [None]
  - LETHARGY [None]
